FAERS Safety Report 8889834 (Version 2)
Quarter: 2012Q4

REPORT INFORMATION
  Report Type: 
  Country: DK (occurrence: AU)
  Receive Date: 20121107
  Receipt Date: 20121109
  Transmission Date: 20130627
  Serious: Yes (Death)
  Sender: FDA-Public Use
  Company Number: AU-FRI-1000039829

PATIENT
  Age: 53 Year
  Sex: Male

DRUGS (4)
  1. CITALOPRAM [Suspect]
  2. DIAZEPAM [Suspect]
  3. NORDIAZEPAM [Suspect]
  4. ETHANOL [Suspect]

REACTIONS (1)
  - Alcohol poisoning [Fatal]
